FAERS Safety Report 5757701-2 (Version None)
Quarter: 2008Q2

REPORT INFORMATION
  Report Type: 
  Country: None (occurrence: None)
  Receive Date: 20080529
  Receipt Date: 20080522
  Transmission Date: 20081010
  Serious: Yes (Other)
  Sender: FDA-Public Use
  Company Number: 19381

PATIENT
  Age: 17 Year
  Sex: Female

DRUGS (11)
  1. CYTARABINE [Suspect]
     Indication: ACUTE MONOCYTIC LEUKAEMIA
     Dosage: 1.4 G/M2
  2. CYTARABINE [Suspect]
     Indication: ACUTE MONOCYTIC LEUKAEMIA
     Dosage: 18 G/M2
  3. CYTARABINE [Suspect]
     Indication: ACUTE MONOCYTIC LEUKAEMIA
     Dosage: 2 G/M2
  4. CYTARABINE [Suspect]
     Indication: ACUTE MONOCYTIC LEUKAEMIA
     Dosage: 6 G/M2
  5. CYTARABINE [Suspect]
     Indication: ACUTE MONOCYTIC LEUKAEMIA
     Dosage: 18 G/M2
  6. IDARUBICIN HCL [Suspect]
     Indication: ACUTE MONOCYTIC LEUKAEMIA
     Dosage: 36 MG/M2
  7. IDARUBICIN HCL [Suspect]
     Indication: ACUTE MONOCYTIC LEUKAEMIA
  8. ETOPOSIDE [Suspect]
     Indication: ACUTE MONOCYTIC LEUKAEMIA
     Dosage: 450 MG/M2
  9. ETOPOSIDE [Suspect]
     Indication: ACUTE MONOCYTIC LEUKAEMIA
     Dosage: 500 MG/M2
  10. MITOXANTRONE [Suspect]
     Indication: ACUTE MONOCYTIC LEUKAEMIA
     Dosage: 20 MG/M2
  11. MITOXANTRONE [Suspect]
     Indication: ACUTE MONOCYTIC LEUKAEMIA
     Dosage: 20 MG/M2

REACTIONS (10)
  - BURNING SENSATION [None]
  - ECCHYMOSIS [None]
  - ERYTHEMA [None]
  - HAEMATOCRIT DECREASED [None]
  - HAEMOGLOBIN DECREASED [None]
  - PAIN [None]
  - PALMAR ERYTHEMA [None]
  - PLATELET COUNT DECREASED [None]
  - RED BLOOD CELL COUNT DECREASED [None]
  - SKIN EXFOLIATION [None]
